FAERS Safety Report 22271276 (Version 2)
Quarter: 2023Q2

REPORT INFORMATION
  Report Type: Spontaneous
  Country: AU (occurrence: None)
  Receive Date: 20230501
  Receipt Date: 20230505
  Transmission Date: 20230722
  Serious: No
  Sender: FDA-Public Use
  Company Number: AU-ROCHE-2759011

PATIENT
  Sex: Female
  Weight: 59 kg

DRUGS (3)
  1. HERCEPTIN [Suspect]
     Active Substance: TRASTUZUMAB
     Indication: Breast cancer metastatic
     Route: 065
  2. PACLITAXEL [Concomitant]
     Active Substance: PACLITAXEL
     Indication: Breast cancer metastatic
  3. GEMCITABINE [Concomitant]
     Active Substance: GEMCITABINE
     Indication: Breast cancer metastatic

REACTIONS (2)
  - Off label use [Unknown]
  - No adverse event [Unknown]
